FAERS Safety Report 10305953 (Version 1)
Quarter: 2014Q3

REPORT INFORMATION
  Report Type: Spontaneous
  Country: CA (occurrence: None)
  Receive Date: 20140714
  Receipt Date: 20140714
  Transmission Date: 20150326
  Serious: Yes (Hospitalization)
  Sender: FDA-Public Use
  Company Number: None

PATIENT
  Age: 60 Year
  Sex: Male
  Weight: 79 kg

DRUGS (7)
  1. NADOLOL. [Concomitant]
     Active Substance: NADOLOL
  2. AMILORIDE [Concomitant]
     Active Substance: AMILORIDE
  3. SOVALDI [Suspect]
     Active Substance: SOFOSBUVIR
     Indication: CHRONIC HEPATITIS C
     Route: 048
     Dates: start: 20140307, end: 20140529
  4. CRESTOR [Concomitant]
     Active Substance: ROSUVASTATIN CALCIUM
  5. SIMEPREVIR [Suspect]
     Active Substance: SIMEPREVIR
     Route: 048
     Dates: start: 20140307, end: 201405
  6. FUROSEMIDE. [Concomitant]
     Active Substance: FUROSEMIDE
  7. FERROUS GLUCONATE [Concomitant]
     Active Substance: FERROUS GLUCONATE

REACTIONS (3)
  - Gastrointestinal haemorrhage [None]
  - Ascites [None]
  - Scrotal swelling [None]

NARRATIVE: CASE EVENT DATE: 20140621
